FAERS Safety Report 6231400-5 (Version None)
Quarter: 2009Q2

REPORT INFORMATION
  Report Type: 
  Country: None (occurrence: None)
  Receive Date: 20090616
  Receipt Date: 20090610
  Transmission Date: 20091009
  Serious: Yes (Other)
  Sender: FDA-Public Use
  Company Number: GB-WYE-G03826009

PATIENT
  Age: 5 Year
  Sex: Male

DRUGS (5)
  1. IBUPROFEN TABLETS [Suspect]
     Indication: PYREXIA
     Dosage: 100 MG EVERY 1 TOT
  2. PREDNISOLONE [Concomitant]
     Dosage: UNKNOWN
  3. PARACETAMOL [Concomitant]
     Indication: PYREXIA
     Dosage: UNKNOWN
  4. AZATHIOPRINE [Concomitant]
     Dosage: UNKNOWN
  5. CYCLOSPORINE [Concomitant]
     Dosage: UNKNOWN

REACTIONS (1)
  - RENAL FAILURE ACUTE [None]
